FAERS Safety Report 4649873-8 (Version None)
Quarter: 2005Q2

REPORT INFORMATION
  Report Type: 
  Country: None (occurrence: None)
  Receive Date: 20050502
  Receipt Date: 20050107
  Transmission Date: 20051028
  Serious: Yes (Life-Threatening, Hospitalization, Disabling)
  Sender: FDA-Public Use
  Company Number: US-MERCK-0501USA00710

PATIENT
  Age: 67 Year
  Sex: Female

DRUGS (14)
  1. VIOXX [Suspect]
     Indication: ARTHRITIS
     Route: 048
     Dates: start: 19990101, end: 20040901
  2. SYNTHROID [Concomitant]
     Route: 065
  3. KEPPRA [Concomitant]
     Route: 065
  4. ARICEPT [Concomitant]
     Route: 065
  5. ZYPREXA [Concomitant]
     Route: 065
  6. ALLEGRA [Concomitant]
     Route: 065
  7. PREVACID [Concomitant]
     Route: 065
  8. NORVASC [Concomitant]
     Route: 065
  9. HYDROCHLOROTHIAZIDE [Concomitant]
     Route: 065
  10. LIPITOR [Concomitant]
     Route: 065
  11. AMBIEN [Concomitant]
     Route: 065
  12. DEPAKOTE [Concomitant]
     Route: 065
  13. LOTENSIN [Concomitant]
     Route: 065
  14. DETROL [Concomitant]
     Route: 065

REACTIONS (1)
  - THROMBOSIS [None]
